FAERS Safety Report 12672661 (Version 2)
Quarter: 2019Q3

REPORT INFORMATION
  Report Type: Spontaneous
  Country: US (occurrence: US)
  Receive Date: 20160822
  Receipt Date: 20190801
  Transmission Date: 20191004
  Serious: Yes (Other)
  Sender: FDA-Public Use
  Company Number: US-ROCHE-1817184

PATIENT
  Age: 75 Year
  Sex: Female

DRUGS (3)
  1. ATROVENT [Concomitant]
     Active Substance: IPRATROPIUM BROMIDE
  2. MUCINEX [Concomitant]
     Active Substance: GUAIFENESIN
  3. ACTEMRA [Suspect]
     Active Substance: TOCILIZUMAB
     Indication: RHEUMATOID ARTHRITIS
     Route: 058

REACTIONS (3)
  - Candida infection [Unknown]
  - Pharyngeal swelling [Unknown]
  - Contusion [Unknown]

NARRATIVE: CASE EVENT DATE: 20160404
